FAERS Safety Report 25906624 (Version 1)
Quarter: 2025Q4

REPORT INFORMATION
  Report Type: Spontaneous
  Country: EU (occurrence: EU)
  Receive Date: 20251010
  Receipt Date: 20251010
  Transmission Date: 20260117
  Serious: Yes (Death, Other)
  Sender: TAKEDA
  Company Number: EU-INCYTE CORPORATION-2025IN010963

PATIENT
  Age: 75 Year
  Sex: Male

DRUGS (3)
  1. ICLUSIG [Suspect]
     Active Substance: PONATINIB HYDROCHLORIDE
     Indication: Chronic myeloid leukaemia
     Dosage: 15 MILLIGRAM, QD
  2. ASCIMINIB [Concomitant]
     Active Substance: ASCIMINIB
     Indication: Chronic myeloid leukaemia
     Dosage: 200 MILLIGRAM, Q12H
  3. HYDROXYUREA [Concomitant]
     Active Substance: HYDROXYUREA
     Indication: Polycythaemia
     Dosage: UNK

REACTIONS (4)
  - Cardiovascular disorder [Fatal]
  - Blast crisis in myelogenous leukaemia [Unknown]
  - Disease progression [Unknown]
  - Drug ineffective [Unknown]
